FAERS Safety Report 9361392 (Version 2)
Quarter: 2013Q3

REPORT INFORMATION
  Report Type: Spontaneous
  Country: FR (occurrence: FR)
  Receive Date: 20130621
  Receipt Date: 20130911
  Transmission Date: 20140515
  Serious: Yes (Other)
  Sender: FDA-Public Use
  Company Number: FR-TEVA-413746ISR

PATIENT
  Age: 70 Year
  Sex: Male
  Weight: 65 kg

DRUGS (7)
  1. FUROSEMIDE TEVA 40 MG [Suspect]
     Indication: HOSPITALISATION
     Dosage: 40 MILLIGRAM DAILY;
     Dates: start: 20130404
  2. ALDACTONE [Concomitant]
  3. MONO TIELDEM LP [Concomitant]
  4. NEBIVOLOL 5 MG [Concomitant]
     Dosage: 5 MILLIGRAM DAILY;
  5. CRESTOR 5MG [Concomitant]
     Dosage: 5 MILLIGRAM DAILY;
  6. KARDEGIC 75 MG [Concomitant]
     Dosage: 75 MILLIGRAM DAILY;
  7. CORVASAL 4 MG [Concomitant]
     Dosage: 8 MILLIGRAM DAILY;

REACTIONS (2)
  - Depressed level of consciousness [Recovered/Resolved]
  - Road traffic accident [Unknown]
